FAERS Safety Report 5296277-3 (Version None)
Quarter: 2007Q2

REPORT INFORMATION
  Report Type: 
  Country: None (occurrence: None)
  Receive Date: 20070413
  Receipt Date: 20070402
  Transmission Date: 20071010
  Serious: Yes (Other)
  Sender: FDA-Public Use
  Company Number: PHEH2007US03863

PATIENT
  Age: 61 Year
  Sex: Female

DRUGS (10)
  1. ENULOSE [Concomitant]
     Indication: GASTROINTESTINAL HYPOMOTILITY
  2. ASPIRIN [Concomitant]
     Dosage: 81 MG, UNK
  3. POTASSIUM ACETATE [Concomitant]
  4. LISINOPRIL [Concomitant]
  5. ULTRAM [Concomitant]
  6. XANAX [Concomitant]
  7. CALCIUM [Concomitant]
     Dosage: 1800 MG, QD
  8. HUMULIN R [Concomitant]
  9. LANTUS [Concomitant]
  10. ZELNORM [Suspect]
     Indication: GASTROINTESTINAL HYPOMOTILITY
     Dosage: 6 MG, BID
     Route: 048

REACTIONS (4)
  - BRADYPHRENIA [None]
  - CARDIAC PACEMAKER INSERTION [None]
  - HYPOKINESIA [None]
  - STENT PLACEMENT [None]
